FAERS Safety Report 7321777-1 (Version None)
Quarter: 2011Q1

REPORT INFORMATION
  Report Type: 
  Country: None (occurrence: None)
  Receive Date: 20110215
  Receipt Date: 20110131
  Transmission Date: 20110831
  Serious: Yes (Hospitalization)
  Sender: FDA-Public Use
  Company Number: CIO11001975

PATIENT
  Age: 68 Year
  Sex: Female

DRUGS (3)
  1. INSULIN HUMAN (INSULIN HUMAN) [Concomitant]
  2. PEPTO-BISMOL, VERSION/FLAVOR UNKNOWN (BISMUTH SUBSALICYLATE 262 0R 525 [Suspect]
     Dosage: ,ORAL
     Route: 048
  3. MECLIZINE /00072801/ (MECLOZINE) [Concomitant]

REACTIONS (23)
  - DIARRHOEA [None]
  - ABDOMINAL DISCOMFORT [None]
  - VERTIGO [None]
  - BLOOD KETONE BODY PRESENT [None]
  - INAPPROPRIATE AFFECT [None]
  - COAGULOPATHY [None]
  - ANION GAP INCREASED [None]
  - GLYCOSURIA [None]
  - ANALGESIC DRUG LEVEL INCREASED [None]
  - INAPPROPRIATE SCHEDULE OF DRUG ADMINISTRATION [None]
  - TOXICITY TO VARIOUS AGENTS [None]
  - HYPERGLYCAEMIA [None]
  - AZOTAEMIA [None]
  - BLOOD CREATININE INCREASED [None]
  - BLOOD GLUCOSE INCREASED [None]
  - ASTHENIA [None]
  - HYPOACUSIS [None]
  - BLOOD UREA INCREASED [None]
  - METABOLIC ACIDOSIS [None]
  - PROTHROMBIN TIME PROLONGED [None]
  - PROTEINURIA [None]
  - X-RAY ABNORMAL [None]
  - ACID-BASE BALANCE DISORDER MIXED [None]
